FAERS Safety Report 15014440 (Version 3)
Quarter: 2019Q2

REPORT INFORMATION
  Report Type: Spontaneous
  Country: US (occurrence: US)
  Receive Date: 20180615
  Receipt Date: 20190614
  Transmission Date: 20190711
  Serious: Yes (Death, Other)
  Sender: FDA-Public Use
  Company Number: US-ASTRAZENECA-2018SE74135

PATIENT
  Sex: Female

DRUGS (50)
  1. CEFUROXIME. [Concomitant]
     Active Substance: CEFUROXIME
  2. EFFEXOR [Concomitant]
     Active Substance: VENLAFAXINE HYDROCHLORIDE
  3. LEVAQUIN [Concomitant]
     Active Substance: LEVOFLOXACIN
  4. LISINOPRIL. [Concomitant]
     Active Substance: LISINOPRIL
  5. METOPROLOL TARTRATE. [Concomitant]
     Active Substance: METOPROLOL TARTRATE
  6. AMLODIPINE BESYLATE. [Concomitant]
     Active Substance: AMLODIPINE BESYLATE
  7. FUROSEMIDE. [Concomitant]
     Active Substance: FUROSEMIDE
  8. TRAMADOL HYDROCHLORIDE. [Concomitant]
     Active Substance: TRAMADOL HYDROCHLORIDE
  9. METFORMIN HYDROCHLORIDE. [Concomitant]
     Active Substance: METFORMIN HYDROCHLORIDE
  10. PAROXETINE HYDROCHLORIDE. [Concomitant]
     Active Substance: PAROXETINE HYDROCHLORIDE
  11. ACTOS [Concomitant]
     Active Substance: PIOGLITAZONE HYDROCHLORIDE
  12. ATENOLOL. [Concomitant]
     Active Substance: ATENOLOL
  13. SIMVASTATIN. [Concomitant]
     Active Substance: SIMVASTATIN
  14. TRICOR [Concomitant]
     Active Substance: FENOFIBRATE
  15. KLOR-CON [Concomitant]
     Active Substance: POTASSIUM CHLORIDE
  16. HYDROCHLOROTHIAZIDE. [Concomitant]
     Active Substance: HYDROCHLOROTHIAZIDE
  17. ISOSORBIDE DINITRATE. [Concomitant]
     Active Substance: ISOSORBIDE DINITRATE
  18. ZOLPIDEM TARTRATE. [Concomitant]
     Active Substance: ZOLPIDEM TARTRATE
  19. CLOPIDOGREL [Concomitant]
     Active Substance: CLOPIDOGREL BISULFATE
  20. ZOLPIDEM [Concomitant]
     Active Substance: ZOLPIDEM\ZOLPIDEM TARTRATE
  21. COMBIVENT [Concomitant]
     Active Substance: ALBUTEROL SULFATE\IPRATROPIUM BROMIDE
  22. ZYRTEC [Concomitant]
     Active Substance: CETIRIZINE HYDROCHLORIDE
  23. LOSARTAN. [Concomitant]
     Active Substance: LOSARTAN
  24. ATORVASTATIN [Concomitant]
     Active Substance: ATORVASTATIN
  25. NEXIUM [Suspect]
     Active Substance: ESOMEPRAZOLE MAGNESIUM
     Indication: GASTRIC PH DECREASED
     Route: 048
     Dates: start: 2006, end: 2009
  26. BYETTA [Concomitant]
     Active Substance: EXENATIDE
  27. ALPRAZOLAM. [Concomitant]
     Active Substance: ALPRAZOLAM
  28. WARFARIN [Concomitant]
     Active Substance: WARFARIN
  29. NEXIUM [Suspect]
     Active Substance: ESOMEPRAZOLE MAGNESIUM
     Indication: GASTRIC PH DECREASED
     Route: 048
     Dates: start: 20060803
  30. PROTONIX [Suspect]
     Active Substance: PANTOPRAZOLE SODIUM
     Indication: GASTRIC PH DECREASED
     Route: 065
     Dates: start: 1996, end: 2012
  31. PROTONIX [Suspect]
     Active Substance: PANTOPRAZOLE SODIUM
     Indication: GASTRIC PH DECREASED
     Route: 065
     Dates: start: 20050902
  32. FLUCONAZOLE. [Concomitant]
     Active Substance: FLUCONAZOLE
  33. VYTORIN [Concomitant]
     Active Substance: EZETIMIBE\SIMVASTATIN
  34. LYRICA [Concomitant]
     Active Substance: PREGABALIN
  35. JANUVIA [Concomitant]
     Active Substance: SITAGLIPTIN PHOSPHATE
  36. OMEPRAZOLE. [Concomitant]
     Active Substance: OMEPRAZOLE
  37. LORAZEPAM. [Concomitant]
     Active Substance: LORAZEPAM
  38. NEXIUM [Suspect]
     Active Substance: ESOMEPRAZOLE MAGNESIUM
     Indication: GASTRIC PH DECREASED
     Route: 048
     Dates: start: 1996, end: 2012
  39. PROTONIX [Suspect]
     Active Substance: PANTOPRAZOLE SODIUM
     Indication: GASTRIC PH DECREASED
     Route: 065
     Dates: start: 2006, end: 2009
  40. METRONIDAZOLE. [Concomitant]
     Active Substance: METRONIDAZOLE
  41. LOTREL [Concomitant]
     Active Substance: AMLODIPINE BESYLATE\BENAZEPRIL HYDROCHLORIDE
  42. ROPINIROLE HYDROCHLORIDE. [Concomitant]
     Active Substance: ROPINIROLE HYDROCHLORIDE
  43. NIASPAN [Concomitant]
     Active Substance: NIACIN
  44. LORAZEPAM. [Concomitant]
     Active Substance: LORAZEPAM
  45. BUPROPION. [Concomitant]
     Active Substance: BUPROPION
  46. HYDROCODONE BITARTRATE AND ACETAMINOPHEN [Concomitant]
     Active Substance: ACETAMINOPHEN\HYDROCODONE BITARTRATE
  47. PROTONIX [Suspect]
     Active Substance: PANTOPRAZOLE SODIUM
     Indication: GASTRIC PH DECREASED
     Dosage: PANTOPRAZOLE SODIUM
     Route: 065
     Dates: start: 20090903
  48. FENOFIBRATE. [Concomitant]
     Active Substance: FENOFIBRATE
  49. GABAPENTIN. [Concomitant]
     Active Substance: GABAPENTIN
  50. LANTUS [Concomitant]
     Active Substance: INSULIN GLARGINE

REACTIONS (4)
  - Chronic kidney disease [Unknown]
  - End stage renal disease [Unknown]
  - Death [Fatal]
  - Renal failure [Unknown]
